FAERS Safety Report 14482888 (Version 2)
Quarter: 2018Q1

REPORT INFORMATION
  Report Type: Spontaneous
  Country: PL (occurrence: PL)
  Receive Date: 20180203
  Receipt Date: 20180327
  Transmission Date: 20180509
  Serious: Yes (Hospitalization)
  Sender: FDA-Public Use
  Company Number: PL-AUROBINDO-AUR-APL-2018-004322

PATIENT
  Age: 17 Year
  Sex: Male

DRUGS (1)
  1. AMOXICILLIN+CLAVULANIC ACID [Suspect]
     Active Substance: AMOXICILLIN\CLAVULANIC ACID
     Indication: RESPIRATORY TRACT INFECTION BACTERIAL
     Dosage: UNK
     Route: 065

REACTIONS (9)
  - Lung consolidation [Recovered/Resolved]
  - Activated partial thromboplastin time prolonged [Unknown]
  - Somnolence [Unknown]
  - Glucose tolerance impaired [Unknown]
  - Dry mouth [Unknown]
  - Drug ineffective [Unknown]
  - Inflammatory marker increased [Unknown]
  - Prothrombin time prolonged [Unknown]
  - Coagulation factor increased [Unknown]
